FAERS Safety Report 15056501 (Version 2)
Quarter: 2018Q2

REPORT INFORMATION
  Report Type: Spontaneous
  Country: JP (occurrence: JP)
  Receive Date: 20180623
  Receipt Date: 20180627
  Transmission Date: 20180711
  Serious: Yes (Other)
  Sender: FDA-Public Use
  Company Number: JP-ABBVIE-18K-087-2396052-00

PATIENT
  Age: 68 Year
  Sex: Male

DRUGS (5)
  1. MAVIRET [Suspect]
     Active Substance: GLECAPREVIR\PIBRENTASVIR
     Route: 048
     Dates: start: 20180603
  2. ISONIAZID. [Concomitant]
     Active Substance: ISONIAZID
     Indication: ANTIBIOTIC PROPHYLAXIS
     Route: 048
  3. MAVIRET [Suspect]
     Active Substance: GLECAPREVIR\PIBRENTASVIR
     Indication: CHRONIC HEPATITIS C
     Route: 048
     Dates: start: 20180520, end: 20180602
  4. PYRIDOXAL PHOSPHATE HYDRATE [Concomitant]
     Indication: ANTIBIOTIC PROPHYLAXIS
     Route: 048
  5. USTEKINUMAB [Concomitant]
     Active Substance: USTEKINUMAB
     Indication: PSORIASIS
     Route: 058

REACTIONS (1)
  - Blood bilirubin increased [Recovered/Resolved]

NARRATIVE: CASE EVENT DATE: 20180602
